FAERS Safety Report 4590905-3 (Version None)
Quarter: 2005Q1

REPORT INFORMATION
  Report Type: 
  Country: None (occurrence: None)
  Receive Date: 20050225
  Receipt Date: 20050215
  Transmission Date: 20050727
  Serious: Yes (Death)
  Sender: FDA-Public Use
  Company Number: GB-JNJFOC-20050203814

PATIENT
  Sex: Female
  Weight: 53 kg

DRUGS (10)
  1. REMICADE [Suspect]
     Indication: RHEUMATOID ARTHRITIS
     Route: 042
  2. FERROUS SULFATE TAB [Concomitant]
  3. DICLOMAX [Concomitant]
  4. DICLOFENAR [Concomitant]
  5. ENALAPRIL [Concomitant]
  6. BENDROFLUAZIDE [Concomitant]
  7. DIDRONEL [Concomitant]
  8. OMEPRAZOLE [Concomitant]
  9. CO-DYDRAMOL [Concomitant]
  10. CO-DYDRAMOL [Concomitant]

REACTIONS (1)
  - DEATH [None]
